FAERS Safety Report 19584920 (Version 5)
Quarter: 2021Q4

REPORT INFORMATION
  Report Type: Report from Study
  Country: ES (occurrence: ES)
  Receive Date: 20210720
  Receipt Date: 20211109
  Transmission Date: 20220303
  Serious: Yes (Hospitalization)
  Sender: FDA-Public Use
  Company Number: ES-PFIZER INC-2021906029

PATIENT
  Age: 60 Year
  Sex: Female
  Weight: 54 kg

DRUGS (18)
  1. SUNITINIB MALATE [Suspect]
     Active Substance: SUNITINIB MALATE
     Indication: Gastrointestinal stromal tumour
     Dosage: 50 MG, 1X/DAY (QD)
     Route: 048
     Dates: start: 20190723, end: 20190902
  2. SUNITINIB MALATE [Suspect]
     Active Substance: SUNITINIB MALATE
     Dosage: 50 MG, 1X/DAY (QD)
     Route: 048
     Dates: start: 20190909, end: 20191006
  3. SUNITINIB MALATE [Suspect]
     Active Substance: SUNITINIB MALATE
     Dosage: 50 MG, 1X/DAY (QD)
     Route: 048
     Dates: start: 20191021, end: 20191117
  4. SUNITINIB MALATE [Suspect]
     Active Substance: SUNITINIB MALATE
     Dosage: 37.5 MG, 1X/DAY (QD)
     Route: 048
     Dates: start: 20191210, end: 20200106
  5. SUNITINIB MALATE [Suspect]
     Active Substance: SUNITINIB MALATE
     Dosage: 37.5 MG, 1X/DAY (QD)
     Route: 048
     Dates: start: 20200120, end: 20200216
  6. SUNITINIB MALATE [Suspect]
     Active Substance: SUNITINIB MALATE
     Dosage: 37.5 MG, 1X/DAY (QD)
     Route: 048
     Dates: start: 20200302, end: 20200329
  7. SUNITINIB MALATE [Suspect]
     Active Substance: SUNITINIB MALATE
     Dosage: 37.5 MG, 1X/DAY (QD)
     Route: 048
     Dates: start: 20200416, end: 20200513
  8. SUNITINIB MALATE [Suspect]
     Active Substance: SUNITINIB MALATE
     Dosage: 37.5 MG, 1X/DAY (QD)
     Route: 048
     Dates: start: 20200528, end: 20200624
  9. SUNITINIB MALATE [Suspect]
     Active Substance: SUNITINIB MALATE
     Dosage: 37.5 MG, 1X/DAY (QD)
     Route: 048
     Dates: start: 20200708, end: 20200804
  10. SUNITINIB MALATE [Suspect]
     Active Substance: SUNITINIB MALATE
     Dosage: 37.5 MG, 1X/DAY (QD)
     Route: 048
     Dates: start: 20200818, end: 20200914
  11. SUNITINIB MALATE [Suspect]
     Active Substance: SUNITINIB MALATE
     Dosage: 37.5 MG, 1X/DAY (QD)
     Route: 048
     Dates: start: 20201001, end: 20201029
  12. SUNITINIB MALATE [Suspect]
     Active Substance: SUNITINIB MALATE
     Dosage: 37.5 MG, 1X/DAY (QD)
     Route: 048
     Dates: start: 20201112, end: 20201210
  13. SUNITINIB MALATE [Suspect]
     Active Substance: SUNITINIB MALATE
     Dosage: 37.5 MG, 1X/DAY (QD)
     Route: 048
     Dates: start: 20201222, end: 20210119
  14. SUNITINIB MALATE [Suspect]
     Active Substance: SUNITINIB MALATE
     Dosage: 37.5 MG, 1X/DAY (QD)
     Route: 048
     Dates: start: 20210204, end: 20210304
  15. SUNITINIB MALATE [Suspect]
     Active Substance: SUNITINIB MALATE
     Dosage: 37.5 MG, 1X/DAY (QD)
     Route: 048
     Dates: start: 20210329, end: 20210426
  16. SUNITINIB MALATE [Suspect]
     Active Substance: SUNITINIB MALATE
     Dosage: 37.5 MG, 1X/DAY (QD)
     Route: 048
     Dates: start: 20210510, end: 20210606
  17. LEVOTHYROXINE SODIUM [Concomitant]
     Active Substance: LEVOTHYROXINE SODIUM
     Dosage: UNK
     Dates: start: 20200715
  18. COVID-19 VACCINE [Concomitant]
     Dosage: UNK, SINGLE
     Dates: start: 20210518, end: 20210518

REACTIONS (2)
  - Left ventricular dysfunction [Recovered/Resolved]
  - Cardiac failure [Recovered/Resolved]

NARRATIVE: CASE EVENT DATE: 20210606
